FAERS Safety Report 9238818 (Version 1)
Quarter: 2013Q1

REPORT INFORMATION
  Report Type: Spontaneous
  Country: US (occurrence: None)
  Receive Date: 20121102
  Receipt Date: 20121102
  Transmission Date: 20140127
  Serious: No
  Sender: FDA-Public Use
  Company Number: 2012PPOOO56

PATIENT
  Age: 6 Year
  Sex: Female

DRUGS (2)
  1. NATROBA [Suspect]
     Indication: LICE INFESTATION
     Route: 061
  2. RID [Suspect]

REACTIONS (1)
  - Urine odour abnormal [None]
